FAERS Safety Report 20175912 (Version 2)
Quarter: 2021Q4

REPORT INFORMATION
  Report Type: Report from Study
  Country: US (occurrence: US)
  Receive Date: 20211213
  Receipt Date: 20211229
  Transmission Date: 20220303
  Serious: Yes (Hospitalization)
  Sender: FDA-Public Use
  Company Number: US-PFIZER INC-202101729264

PATIENT
  Age: 57 Year
  Sex: Male
  Weight: 71.4 kg

DRUGS (9)
  1. FLUDARABINE PHOSPHATE [Suspect]
     Active Substance: FLUDARABINE PHOSPHATE
     Indication: Chronic lymphocytic leukaemia
     Dosage: 60 MG, 1 IN 1 D
     Route: 042
     Dates: start: 20211110, end: 20211112
  2. LISOCABTAGENE MARALEUCEL [Suspect]
     Active Substance: LISOCABTAGENE MARALEUCEL
     Indication: Chronic lymphocytic leukaemia
     Dosage: 100 X 10^6 CAR + T CELLS, INJECTION FOR INFUSION, SINGLE
     Route: 042
     Dates: start: 20211115, end: 20211115
  3. CYCLOPHOSPHAMIDE [Suspect]
     Active Substance: CYCLOPHOSPHAMIDE
     Indication: Chronic lymphocytic leukaemia
     Dosage: INJECTION FOR INFUSION, 597 MG, 1 IN 1 D
     Route: 042
     Dates: start: 20211110, end: 20211112
  4. IBRUTINIB [Suspect]
     Active Substance: IBRUTINIB
     Indication: Chronic lymphocytic leukaemia
     Dosage: 420 MG, 1 IN 1 D
     Route: 048
     Dates: start: 20210927
  5. ACYCLOVIR [Concomitant]
     Active Substance: ACYCLOVIR
     Indication: Antiviral prophylaxis
     Dosage: 800 MG, 2 IN 1 D
     Route: 048
     Dates: start: 20211110
  6. ALLOPURINOL [Concomitant]
     Active Substance: ALLOPURINOL
     Indication: Blood uric acid
     Dosage: 300 MG, 1 IN 1 D
     Route: 048
     Dates: start: 20210930
  7. DIFLUCAN [Concomitant]
     Active Substance: FLUCONAZOLE
     Indication: Antifungal prophylaxis
     Dosage: 200 MG, 1 IN 1 D
     Route: 048
     Dates: start: 20211110
  8. BACTRIM [Concomitant]
     Active Substance: SULFAMETHOXAZOLE\TRIMETHOPRIM
     Indication: Prophylaxis
     Dosage: 1 TABLET, M-W-F
     Route: 048
     Dates: start: 20211110
  9. IMODIUM [Concomitant]
     Active Substance: LOPERAMIDE HYDROCHLORIDE
     Indication: Diarrhoea
     Dosage: 4 MG, 1 IN 1 D
     Route: 048
     Dates: start: 20210927, end: 20211115

REACTIONS (1)
  - Cytokine release syndrome [Recovered/Resolved]

NARRATIVE: CASE EVENT DATE: 20211121
